FAERS Safety Report 18321695 (Version 1)
Quarter: 2020Q3

REPORT INFORMATION
  Report Type: Spontaneous
  Country: US (occurrence: US)
  Receive Date: 20200928
  Receipt Date: 20200928
  Transmission Date: 20201103
  Serious: No
  Sender: FDA-Public Use
  Company Number: US-FRESENIUS KABI-FK202009876

PATIENT
  Age: 67 Year
  Sex: Female
  Weight: 104 kg

DRUGS (2)
  1. HEPARIN SODIUM INJECTION, USP [Suspect]
     Active Substance: HEPARIN SODIUM
     Dates: start: 20200923, end: 20200923
  2. HEPARIN SODIUM INJECTION, USP [Suspect]
     Active Substance: HEPARIN SODIUM
     Indication: ANTICOAGULANT THERAPY
     Dates: start: 20200923, end: 20200923

REACTIONS (1)
  - Therapeutic product effect decreased [Unknown]

NARRATIVE: CASE EVENT DATE: 20200923
